FAERS Safety Report 23808091 (Version 1)
Quarter: 2024Q2

REPORT INFORMATION
  Report Type: Spontaneous
  Country: US (occurrence: None)
  Receive Date: 20240501
  Receipt Date: 20240501
  Transmission Date: 20240716
  Serious: Yes (Disabling)
  Sender: FDA-Public Use
  Company Number: None

PATIENT
  Age: 31 Year
  Sex: Female
  Weight: 82.55 kg

DRUGS (1)
  1. MIRENA [Suspect]
     Active Substance: LEVONORGESTREL

REACTIONS (6)
  - Weight increased [None]
  - Suicidal ideation [None]
  - Anxiety [None]
  - Stress [None]
  - Discomfort [None]
  - Pain [None]

NARRATIVE: CASE EVENT DATE: 20240501
